FAERS Safety Report 7991298-1 (Version None)
Quarter: 2011Q4

REPORT INFORMATION
  Report Type: 
  Country: None (occurrence: None)
  Receive Date: 20111219
  Receipt Date: 20111212
  Transmission Date: 20120403
  Serious: Yes (Hospitalization, Other)
  Sender: FDA-Public Use
  Company Number: US-ELI_LILLY_AND_COMPANY-US201107006511

PATIENT
  Sex: Male
  Weight: 95.238 kg

DRUGS (17)
  1. METFORMIN HCL [Concomitant]
     Dosage: 1000 MG, QD
  2. LIPITOR [Concomitant]
     Indication: BLOOD CHOLESTEROL
  3. DIOVAN [Concomitant]
     Dosage: 320 MG, QD
  4. AMARYL [Concomitant]
     Dosage: 8 MG, QD
  5. ZOCOR [Concomitant]
     Dosage: 40 MG, EACH EVENING
  6. BYETTA [Suspect]
     Dosage: 5 UG, BID
     Route: 058
     Dates: start: 20100203, end: 20100301
  7. AVANDIA [Concomitant]
     Dosage: 8 MG, QD
  8. HYDROCHLOROTHIAZIDE [Concomitant]
     Dosage: 12.5 MG, QD
  9. CATAPRES-TTS-1 [Concomitant]
  10. NORVASC [Concomitant]
     Dosage: 5 MG, QD
  11. BYETTA [Suspect]
     Indication: TYPE 2 DIABETES MELLITUS
     Dosage: 10 UG, BID
     Dates: start: 20050901, end: 20090317
  12. TOPAMAX [Concomitant]
     Dosage: 100 MG, BID
  13. ZAROXOLYN [Concomitant]
     Indication: OEDEMA PERIPHERAL
     Dosage: 10 MG, PRN
  14. LASIX [Concomitant]
     Indication: FLUID RETENTION
     Dosage: UNK
  15. DIOVAN [Concomitant]
     Dosage: 160 MG, QD
  16. ALTACE [Concomitant]
     Dosage: 5 MG, QD
  17. KAYEXALATE [Concomitant]
     Dosage: 30 G, 3/W

REACTIONS (9)
  - DIZZINESS [None]
  - SURGERY [None]
  - PANCREATIC OPERATION [None]
  - SPLENECTOMY [None]
  - PANCREATITIS [None]
  - MOBILITY DECREASED [None]
  - ASTHENIA [None]
  - PANCREATIC CARCINOMA [None]
  - RENAL FAILURE CHRONIC [None]
